FAERS Safety Report 16245921 (Version 7)
Quarter: 2019Q4

REPORT INFORMATION
  Report Type: Report from Study
  Country: US (occurrence: US)
  Receive Date: 20190426
  Receipt Date: 20191101
  Transmission Date: 20200122
  Serious: Yes (Other)
  Sender: FDA-Public Use
  Company Number: US-MALLINCKRODT-T201802743

PATIENT
  Age: 43 Year
  Sex: Female

DRUGS (13)
  1. REPOSITORY CORTICOTROPIN INJECTION [Suspect]
     Active Substance: CORTICOTROPIN
     Dosage: 80 UNITS/1 ML, 3 TIMES PER WEEK (MONDAY/ WEDNESDAY/FRIDAY)
     Route: 058
     Dates: start: 2018, end: 2018
  2. REPOSITORY CORTICOTROPIN INJECTION [Suspect]
     Active Substance: CORTICOTROPIN
     Dosage: 80 UNITS/1 ML, EVERY 3 DAYS (MONDAY, WEDNESDAY, FRIDAY)
     Route: 058
     Dates: start: 20160816
  3. REPOSITORY CORTICOTROPIN INJECTION [Suspect]
     Active Substance: CORTICOTROPIN
     Indication: SYSTEMIC LUPUS ERYTHEMATOSUS
     Dosage: 80 UNITS/1 ML, 3 TIMES PER WEEK
     Route: 058
     Dates: start: 2018
  4. REPOSITORY CORTICOTROPIN INJECTION [Suspect]
     Active Substance: CORTICOTROPIN
     Dosage: 80 UNITS/1 ML, 2 TIMES PER WEEK MONDAY/FRIDAY
     Route: 058
     Dates: start: 20160816, end: 2018
  5. METFORMIN [Concomitant]
     Active Substance: METFORMIN HYDROCHLORIDE
     Indication: DIABETES MELLITUS
     Dosage: 1000 MG, BID
     Route: 065
  6. CEFOXITIN [Suspect]
     Active Substance: CEFOXITIN SODIUM
     Indication: MYCOBACTERIAL INFECTION
     Dosage: 2 GRAM, TID
     Route: 042
  7. INSULIN [Concomitant]
     Active Substance: INSULIN NOS
     Indication: DIABETES MELLITUS
     Dosage: UNKNOWN
     Route: 065
  8. REPOSITORY CORTICOTROPIN INJECTION [Suspect]
     Active Substance: CORTICOTROPIN
     Indication: RHEUMATOID ARTHRITIS
     Dosage: 80 UNITS/1ML, 2 TIMES PER WEEK MONDAY/FRIDAY
     Route: 058
     Dates: start: 20160816, end: 201806
  9. REPOSITORY CORTICOTROPIN INJECTION [Suspect]
     Active Substance: CORTICOTROPIN
     Indication: SARCOIDOSIS
     Dosage: 80 UNITS/1 ML, 2 TIMES PER WEEK MONDAY/FRIDAY
     Route: 058
     Dates: start: 2018, end: 2018
  10. REPOSITORY CORTICOTROPIN INJECTION [Suspect]
     Active Substance: CORTICOTROPIN
     Dosage: 80 UNITS/1 ML, EVERY 3 DAYS/EVERY 72 HOURS (MONDAY, WEDNESDAY, FRIDAY)
     Route: 058
     Dates: start: 201809
  11. FORTEO [Concomitant]
     Active Substance: TERIPARATIDE
     Indication: PRODUCT USED FOR UNKNOWN INDICATION
     Dosage: UNK
     Route: 065
  12. MORPHINE [Suspect]
     Active Substance: MORPHINE
     Indication: PAIN
     Dosage: UNK
     Route: 065
     Dates: start: 2018
  13. AMIKACIN. [Suspect]
     Active Substance: AMIKACIN
     Indication: MYCOBACTERIAL INFECTION
     Dosage: 650 MILLIGRAM, THREE TIMES A WEEK
     Route: 042

REACTIONS (47)
  - Central venous catheterisation [Not Recovered/Not Resolved]
  - Vision blurred [Unknown]
  - Low density lipoprotein increased [Not Recovered/Not Resolved]
  - Hunger [Unknown]
  - Nasopharyngitis [Unknown]
  - Mycobacterial infection [Not Recovered/Not Resolved]
  - Blood urea decreased [Not Recovered/Not Resolved]
  - Pain [Unknown]
  - Cough [Not Recovered/Not Resolved]
  - Weight increased [Unknown]
  - Injection site haemorrhage [Recovering/Resolving]
  - Pulmonary mass [Not Recovered/Not Resolved]
  - Blood glucose increased [Not Recovered/Not Resolved]
  - Red blood cell sedimentation rate increased [Unknown]
  - pH urine increased [Unknown]
  - Feeling abnormal [Unknown]
  - Vomiting [Not Recovered/Not Resolved]
  - Malaise [Unknown]
  - Red blood cell count decreased [Not Recovered/Not Resolved]
  - Amnesia [Unknown]
  - Dyspnoea [Not Recovered/Not Resolved]
  - Injection site cyst [Not Recovered/Not Resolved]
  - Surgery [Unknown]
  - Diverticulitis [Not Recovered/Not Resolved]
  - Tremor [Unknown]
  - C-reactive protein increased [Unknown]
  - Nausea [Not Recovered/Not Resolved]
  - Injection site pain [Recovering/Resolving]
  - Drug ineffective [Unknown]
  - Blood cholesterol increased [Not Recovered/Not Resolved]
  - Heart rate irregular [Unknown]
  - Asthenia [Not Recovered/Not Resolved]
  - Lethargy [Not Recovered/Not Resolved]
  - Injection site mass [Recovering/Resolving]
  - Immunosuppression [Not Recovered/Not Resolved]
  - Rheumatoid arthritis [Unknown]
  - Anaemia [Unknown]
  - Pollakiuria [Not Recovered/Not Resolved]
  - Abdominal pain upper [Not Recovered/Not Resolved]
  - Headache [Unknown]
  - Underdose [Unknown]
  - Blood urea nitrogen/creatinine ratio decreased [Not Recovered/Not Resolved]
  - Productive cough [Not Recovered/Not Resolved]
  - Alopecia [Unknown]
  - Vitamin D deficiency [Not Recovered/Not Resolved]
  - Injection site induration [Not Recovered/Not Resolved]
  - Diarrhoea [Not Recovered/Not Resolved]

NARRATIVE: CASE EVENT DATE: 2018
